FAERS Safety Report 13674260 (Version 5)
Quarter: 2018Q2

REPORT INFORMATION
  Report Type: Spontaneous
  Country: JP (occurrence: JP)
  Receive Date: 20170621
  Receipt Date: 20180403
  Transmission Date: 20180711
  Serious: Yes (Death, Life-Threatening, Hospitalization)
  Sender: FDA-Public Use
  Company Number: JP-BAYER-2017-058814

PATIENT
  Age: 72 Year
  Sex: Male
  Weight: 56.7 kg

DRUGS (15)
  1. XOFIGO [Suspect]
     Active Substance: RADIUM RA-223 DICHLORIDE
     Indication: HORMONE-REFRACTORY PROSTATE CANCER
     Dosage: 55 KBQ, Q1MON
     Route: 042
     Dates: start: 20170511, end: 20170511
  2. PREDONINE [Concomitant]
     Active Substance: PREDNISOLONE
     Indication: PROSTATE CANCER
     Dosage: 5MG, DAILY
     Route: 048
     Dates: end: 20170331
  3. FRAGMIN [Concomitant]
     Active Substance: DALTEPARIN SODIUM
  4. ROCALTROL [Concomitant]
     Active Substance: CALCITRIOL
     Indication: OSTEOPOROSIS
     Dosage: 1 ?G, DAILY
     Route: 048
     Dates: end: 20170607
  5. DOCETAXEL. [Concomitant]
     Active Substance: DOCETAXEL
     Dosage: UNK
  6. XOFIGO [Suspect]
     Active Substance: RADIUM RA-223 DICHLORIDE
     Indication: METASTASES TO BONE
     Dosage: 55 KBQ, Q1MON
     Route: 042
     Dates: start: 20170223, end: 20170223
  7. XOFIGO [Suspect]
     Active Substance: RADIUM RA-223 DICHLORIDE
     Indication: HORMONE-REFRACTORY PROSTATE CANCER
     Dosage: 55 KBQ, Q1MON
     Route: 042
     Dates: start: 20170406, end: 20170406
  8. NAFTOPIDIL [Concomitant]
     Active Substance: NAFTOPIDIL
     Dosage: 75MG,DAILY
     Route: 048
     Dates: end: 20170607
  9. ESTRACYT [Concomitant]
     Active Substance: ESTRAMUSTINE PHOSPHATE SODIUM
     Indication: PROSTATE CANCER
     Dosage: 2 DF,DAILY
     Route: 048
     Dates: end: 20170331
  10. BAYASPIRIN 100 MG [Suspect]
     Active Substance: ASPIRIN
     Indication: THROMBOSIS PROPHYLAXIS
     Dosage: 100MG,DAILY
     Route: 048
     Dates: end: 20170331
  11. PROSEXOL [Concomitant]
     Active Substance: ETHINYL ESTRADIOL
     Route: 048
  12. SUPER CAL600-MG300 [Concomitant]
     Indication: HYPOCALCAEMIA
     Dosage: 2 DF,DAILY
     Route: 048
     Dates: end: 20170607
  13. THROMBOMODULIN ALFA [Concomitant]
     Active Substance: THROMBOMODULIN ALFA
  14. DEXAMETHASONE. [Concomitant]
     Active Substance: DEXAMETHASONE
  15. XOFIGO [Suspect]
     Active Substance: RADIUM RA-223 DICHLORIDE
     Indication: HORMONE-REFRACTORY PROSTATE CANCER
     Dosage: 55 KBQ, Q1MON
     Route: 042
     Dates: start: 20170126, end: 20170126

REACTIONS (9)
  - Subdural haematoma [Fatal]
  - Platelet count decreased [Recovering/Resolving]
  - Hormone-refractory prostate cancer [Fatal]
  - Platelet count decreased [None]
  - Sepsis [Not Recovered/Not Resolved]
  - Disseminated intravascular coagulation [Not Recovered/Not Resolved]
  - Platelet count decreased [Not Recovered/Not Resolved]
  - Metastases to bone [Fatal]
  - Loss of consciousness [Fatal]

NARRATIVE: CASE EVENT DATE: 20170331
